FAERS Safety Report 5026260-4 (Version None)
Quarter: 2006Q2

REPORT INFORMATION
  Report Type: 
  Country: None (occurrence: None)
  Receive Date: 20060608
  Receipt Date: 20060529
  Transmission Date: 20061013
  Serious: Yes (Other)
  Sender: FDA-Public Use
  Company Number: S06-FRA-02186-01

PATIENT
  Age: 67 Year
  Sex: Male

DRUGS (2)
  1. SEROPLEX (ESCITALOPRAM) [Suspect]
     Dosage: PO
     Route: 048
     Dates: start: 20060501, end: 20060501
  2. ANTIHYPERTENSIVES [Concomitant]

REACTIONS (1)
  - GENERALISED OEDEMA [None]
